FAERS Safety Report 16122275 (Version 2)
Quarter: 2019Q2

REPORT INFORMATION
  Report Type: Spontaneous
  Country: IT (occurrence: IT)
  Receive Date: 20190327
  Receipt Date: 20190503
  Transmission Date: 20190711
  Serious: Yes (Other)
  Sender: FDA-Public Use
  Company Number: IT-009507513-1903ITA009867

PATIENT
  Age: 30 Year
  Sex: Male
  Weight: 97 kg

DRUGS (6)
  1. PEMBROLIZUMAB. [Suspect]
     Active Substance: PEMBROLIZUMAB
     Indication: ADRENOCORTICAL CARCINOMA
     Dosage: 200 MILLIGRAM, Q21D(Q3W)
     Dates: start: 20180228, end: 20180321
  2. PEMBROLIZUMAB. [Suspect]
     Active Substance: PEMBROLIZUMAB
     Dosage: 200 MILLIGRAM, Q21D(Q3W)
     Dates: start: 20180516
  3. CORTONE ACETATO [Concomitant]
     Active Substance: CORTISONE ACETATE
     Indication: ADRENALECTOMY
     Dosage: 25 MILLIGRAM
     Route: 048
     Dates: start: 20160511
  4. MITOTANE [Concomitant]
     Active Substance: MITOTANE
     Indication: ADRENAL GLAND CANCER
     Dosage: 500 MILLIGRAM
     Route: 048
     Dates: start: 20160511
  5. FLORINEF ACETATE [Concomitant]
     Active Substance: FLUDROCORTISONE ACETATE
     Indication: ADRENALECTOMY
     Dosage: 0.1 MILLIGRAM
     Route: 048
     Dates: start: 20160511
  6. PANTOPRAZOLE [Concomitant]
     Active Substance: PANTOPRAZOLE
     Indication: ADRENOCORTICAL STEROID THERAPY
     Dosage: 40 MILLIGRAM
     Route: 048
     Dates: start: 20160511

REACTIONS (4)
  - Hepatotoxicity [Recovered/Resolved]
  - Immune-mediated adverse reaction [Unknown]
  - Hyperbilirubinaemia [Unknown]
  - Off label use [Unknown]

NARRATIVE: CASE EVENT DATE: 20180321
